FAERS Safety Report 6806393-X (Version None)
Quarter: 2010Q2

REPORT INFORMATION
  Report Type: 
  Country: None (occurrence: None)
  Receive Date: 20100629
  Receipt Date: 20080226
  Transmission Date: 20101027
  Serious: No
  Sender: FDA-Public Use
  Company Number: US-PFIZER INC-2008019877

PATIENT
  Sex: Male
  Weight: 92.99 kg

DRUGS (3)
  1. MINIPRESS [Suspect]
     Indication: PROSTATOMEGALY
     Dates: start: 20050101
  2. ACETYLSALICYLIC ACID [Concomitant]
  3. MULTI-VITAMINS [Concomitant]

REACTIONS (2)
  - CHILLS [None]
  - NASOPHARYNGITIS [None]
